FAERS Safety Report 6402764-4 (Version None)
Quarter: 2009Q4

REPORT INFORMATION
  Report Type: 
  Country: None (occurrence: None)
  Receive Date: 20091016
  Receipt Date: 20091008
  Transmission Date: 20100525
  Serious: Yes (Other)
  Sender: FDA-Public Use
  Company Number: JP-RANBAXY-2009RR-27977

PATIENT
  Age: 44 Year
  Sex: Female

DRUGS (6)
  1. FENOFIBRATE [Suspect]
     Indication: HYPERLIPIDAEMIA
     Dosage: 100 MG, QD
     Route: 048
     Dates: start: 20090606, end: 20090810
  2. VALSARTAN [Concomitant]
     Route: 065
  3. RIBOFLAVIN TETRABUTYRATE [Concomitant]
     Route: 065
  4. ASCORBIC ACID [Concomitant]
     Route: 065
  5. FAMOTIDINE [Concomitant]
     Dosage: UNK
     Route: 065
     Dates: end: 20090810
  6. EBASTINE [Concomitant]
     Route: 065

REACTIONS (1)
  - HEPATIC FUNCTION ABNORMAL [None]
